FAERS Safety Report 14120495 (Version 1)
Quarter: 2017Q4

REPORT INFORMATION
  Report Type: Report from Study
  Country: BR (occurrence: BR)
  Receive Date: 20171024
  Receipt Date: 20171024
  Transmission Date: 20180321
  Serious: Yes (Other)
  Sender: FDA-Public Use
  Company Number: PHHY2017BR107319

PATIENT
  Sex: Male
  Weight: 85 kg

DRUGS (3)
  1. COSENTYX [Suspect]
     Active Substance: SECUKINUMAB
     Indication: ANKYLOSING SPONDYLITIS
     Dosage: 150 MG, QMO
     Route: 058
  2. PREDSIN [Concomitant]
     Active Substance: CHLORAMPHENICOL\PREDNISOLONE
     Indication: ANKYLOSING SPONDYLITIS
     Dosage: 1 DF, QD
     Route: 048
  3. TRAMAL [Concomitant]
     Active Substance: TRAMADOL
     Indication: ANKYLOSING SPONDYLITIS
     Dosage: 1 DF, QD
     Route: 048

REACTIONS (2)
  - Dermatitis allergic [Not Recovered/Not Resolved]
  - Pruritus generalised [Not Recovered/Not Resolved]
